FAERS Safety Report 9372091 (Version 1)
Quarter: 2013Q2

REPORT INFORMATION
  Report Type: Report from Study
  Country: US (occurrence: US)
  Receive Date: 20130627
  Receipt Date: 20130627
  Transmission Date: 20140414
  Serious: Yes (Other)
  Sender: FDA-Public Use
  Company Number: US-MYLANLABS-2012S1014619

PATIENT
  Age: 54 Year
  Sex: Male

DRUGS (7)
  1. CLOZAPINE TABLETS [Suspect]
     Route: 048
     Dates: end: 20120813
  2. TYLENOL [Concomitant]
  3. ASPIRIN [Concomitant]
  4. CARVEDILOL [Concomitant]
  5. DAPTOMYCIN [Concomitant]
  6. HEPARIN [Concomitant]
  7. PEPCID [Concomitant]

REACTIONS (1)
  - Granulocytopenia [Not Recovered/Not Resolved]
